FAERS Safety Report 5642319-2 (Version None)
Quarter: 2008Q1

REPORT INFORMATION
  Report Type: 
  Country: None (occurrence: None)
  Receive Date: 20080225
  Receipt Date: 20080124
  Transmission Date: 20080703
  Serious: Yes (Hospitalization, Other)
  Sender: FDA-Public Use
  Company Number: TRP_01038_2008

PATIENT
  Sex: Female
  Weight: 74.8435 kg

DRUGS (5)
  1. INFERGEN/INTERFERON ALFACON-1/VALEANT 15 UG [Suspect]
     Indication: HEPATITIS C
     Dosage: 15 UG QD, SUBCUTANEOUS, 7.5 UG QD; SUBCUTANEOUS
     Route: 058
     Dates: start: 20061209, end: 20070104
  2. INFERGEN/INTERFERON ALFACON-1/VALEANT 15 UG [Suspect]
     Indication: HEPATITIS C
     Dosage: 15 UG QD, SUBCUTANEOUS, 7.5 UG QD; SUBCUTANEOUS
     Route: 058
     Dates: start: 20070105, end: 20070301
  3. RIBAVIRIN [Suspect]
     Indication: HEPATITIS C
     Dosage: 600 MG, ORAL, 400 MG ORAL
     Route: 048
     Dates: start: 20061209, end: 20070301
  4. RIBAVIRIN [Suspect]
     Indication: HEPATITIS C
     Dosage: 600 MG, ORAL, 400 MG ORAL
     Route: 048
     Dates: start: 20061209, end: 20070301
  5. ATENOLOL [Concomitant]

REACTIONS (10)
  - CHEST DISCOMFORT [None]
  - COUGH [None]
  - DRUG INEFFECTIVE [None]
  - EAR INFECTION [None]
  - HEADACHE [None]
  - HEPATITIS C RNA POSITIVE [None]
  - LYMPHADENOPATHY [None]
  - PHARYNGITIS STREPTOCOCCAL [None]
  - PYREXIA [None]
  - TYMPANIC MEMBRANE PERFORATION [None]
